FAERS Safety Report 20337281 (Version 2)
Quarter: 2022Q1

REPORT INFORMATION
  Report Type: Spontaneous
  Country: US (occurrence: US)
  Receive Date: 20220114
  Receipt Date: 20220228
  Transmission Date: 20220424
  Serious: No
  Sender: FDA-Public Use
  Company Number: US-SA-SAC20220107000183

PATIENT
  Age: 57 Year
  Sex: Female

DRUGS (1)
  1. THYROGEN [Suspect]
     Active Substance: THYROTROPIN ALFA
     Indication: Thyroid cancer
     Dosage: 0.9 MG, QD (EVERY 24 HOURS FOR 2 DOSES)
     Route: 030
     Dates: start: 202110

REACTIONS (9)
  - Toothache [Not Recovered/Not Resolved]
  - Tooth disorder [Not Recovered/Not Resolved]
  - General physical health deterioration [Not Recovered/Not Resolved]
  - Tooth fracture [Not Recovered/Not Resolved]
  - Alopecia [Unknown]
  - Eyelid irritation [Unknown]
  - Fatigue [Unknown]
  - Tracheostomy [Not Recovered/Not Resolved]
  - Product dose omission issue [Unknown]

NARRATIVE: CASE EVENT DATE: 20211101
